FAERS Safety Report 13485876 (Version 5)
Quarter: 2017Q3

REPORT INFORMATION
  Report Type: Spontaneous
  Country: KR (occurrence: KR)
  Receive Date: 20170426
  Receipt Date: 20170825
  Transmission Date: 20171127
  Serious: Yes (Death, Hospitalization)
  Sender: FDA-Public Use
  Company Number: KR-009507513-1704KOR011923

PATIENT
  Age: 78 Year
  Sex: Female
  Weight: 78 kg

DRUGS (18)
  1. EMEND (FOSAPREPITANT DIMEGLUMINE) [Suspect]
     Active Substance: FOSAPREPITANT DIMEGLUMINE
     Indication: PROPHYLAXIS OF NAUSEA AND VOMITING
     Dosage: 150 MG, ONCE
     Route: 042
     Dates: start: 20161214, end: 20161214
  2. ABSTRAL [Concomitant]
     Active Substance: FENTANYL CITRATE
     Indication: PAIN
     Dosage: 100 MG, QD, MAXIMUM 8 TABLETS
     Route: 060
     Dates: start: 201611, end: 20161205
  3. DEXAMETHASONE SODIUM PHOSPHATE. [Concomitant]
     Active Substance: DEXAMETHASONE SODIUM PHOSPHATE
     Indication: PREMEDICATION
     Dosage: 12 MG, ONCE, STRENGTH 5MG/ML
     Route: 042
     Dates: start: 20161214, end: 20161214
  4. ULCERMIN [Concomitant]
     Active Substance: SUCRALFATE
     Indication: PROPHYLAXIS
     Dosage: 1 PK, TID, STRENGTH 1G/15ML
     Route: 048
     Dates: start: 20161206, end: 20161229
  5. NASERON [Concomitant]
     Indication: PREMEDICATION
     Dosage: 0.3 MG, ONCE
     Route: 042
     Dates: start: 20161214, end: 20161214
  6. DUPHALAC [Concomitant]
     Active Substance: LACTULOSE
     Indication: CONSTIPATION PROPHYLAXIS
     Dosage: 1 PK, TID
     Route: 048
     Dates: start: 201611, end: 20161224
  7. CYCIN [Concomitant]
     Indication: PROPHYLAXIS
     Dosage: 400 MG, BID; STRENGTH 400MG 0.4G/200ML
     Route: 042
     Dates: start: 20161206, end: 20161214
  8. PIPERACILLIN AND TAZOBACTAM [Concomitant]
     Active Substance: PIPERACILLIN SODIUM\TAZOBACTAM SODIUM
     Indication: PROPHYLAXIS
     Dosage: 4.5 G, TID
     Route: 042
     Dates: start: 20161202
  9. DEXAMETHASONE SODIUM PHOSPHATE. [Concomitant]
     Active Substance: DEXAMETHASONE SODIUM PHOSPHATE
     Dosage: 8 MG, QD, STRENGTH 5MG/ML
     Route: 042
     Dates: start: 20161215, end: 20161216
  10. DUROGESIC [Concomitant]
     Active Substance: FENTANYL
     Indication: PAIN
     Dosage: 1 PK, QD, STRENGTH 50MCG/H 21 CM3 (ROTE: PATCH)
     Dates: start: 201611
  11. NORZYME [Concomitant]
     Indication: PROPHYLAXIS
     Dosage: 1 CAPSULE, BID
     Route: 048
     Dates: start: 201611, end: 20161219
  12. MORPHINE SULFATE. [Concomitant]
     Active Substance: MORPHINE SULFATE
     Indication: PAIN
     Dosage: 2 MG, QD; STRENGTH 5MG/5ML
     Route: 042
     Dates: start: 20161201
  13. AMODIPIN [Concomitant]
     Indication: HYPERTENSION
     Dosage: 5 MG, QD
     Route: 048
  14. LASIX [Concomitant]
     Active Substance: FUROSEMIDE
     Indication: HYPERCALCAEMIA
     Dosage: 20 MG, QD
     Route: 042
     Dates: start: 201611
  15. DENOGAN [Concomitant]
     Active Substance: PROPACETAMOL HYDROCHLORIDE
     Indication: PYREXIA
     Dosage: 1 G, QD
     Route: 042
     Dates: start: 20161201, end: 20161227
  16. CISPLATIN. [Concomitant]
     Active Substance: CISPLATIN
     Indication: SQUAMOUS CELL CARCINOMA
     Dosage: 66.75 MG, ONCE, STRENGTH 50MG/100ML, CYCLE 1
     Route: 042
     Dates: start: 20161214, end: 20161214
  17. MAGO [Concomitant]
     Indication: CONSTIPATION PROPHYLAXIS
     Dosage: 500 MG, TID
     Route: 048
     Dates: start: 201611, end: 20161224
  18. MACPERAN [Concomitant]
     Active Substance: METOCLOPRAMIDE HYDROCHLORIDE
     Indication: PROPHYLAXIS OF NAUSEA AND VOMITING
     Dosage: 10 MG, BID
     Route: 042
     Dates: start: 20161203

REACTIONS (1)
  - Pleural effusion [Fatal]

NARRATIVE: CASE EVENT DATE: 20161214
